FAERS Safety Report 9027958 (Version 1)
Quarter: 2013Q1

REPORT INFORMATION
  Report Type: Spontaneous
  Country: AU (occurrence: None)
  Receive Date: 20130114
  Receipt Date: 20130114
  Transmission Date: 20140127
  Serious: Yes (Life-Threatening, Disabling, Other)
  Sender: FDA-Public Use
  Company Number: None

PATIENT
  Age: 40 Year
  Sex: Male
  Weight: 67 kg

DRUGS (1)
  1. RISPERDAL [Suspect]
     Indication: SCHIZOPHRENIA
     Dosage: ONE DAILY PO
     Route: 048
     Dates: start: 20130111, end: 20130112

REACTIONS (3)
  - Anxiety [None]
  - Insomnia [None]
  - Emotional distress [None]
